FAERS Safety Report 6087607-3 (Version None)
Quarter: 2009Q1

REPORT INFORMATION
  Report Type: 
  Country: None (occurrence: None)
  Receive Date: 20090223
  Receipt Date: 20090216
  Transmission Date: 20090719
  Serious: Yes (Other)
  Sender: FDA-Public Use
  Company Number: DZ-PFIZER INC-2009170016

PATIENT

DRUGS (3)
  1. ATORVASTATIN [Suspect]
     Indication: ISCHAEMIC STROKE
     Dosage: 10 MG, 1X/DAY
     Route: 048
  2. TENSOPREL [Concomitant]
     Dosage: 25 MG, 1X/DAY
  3. ASPEGIC 325 [Concomitant]
     Dosage: 100 MG, 1X/DAY

REACTIONS (2)
  - DRY MOUTH [None]
  - NASAL DRYNESS [None]
